FAERS Safety Report 17456392 (Version 1)
Quarter: 2020Q1

REPORT INFORMATION
  Report Type: Spontaneous
  Country: US (occurrence: US)
  Receive Date: 20200225
  Receipt Date: 20200225
  Transmission Date: 20200409
  Serious: Yes (Death)
  Sender: FDA-Public Use
  Company Number: None

PATIENT
  Age: 84 Year
  Sex: Male
  Weight: 65.7 kg

DRUGS (19)
  1. ASPIRIN 81 MG [Concomitant]
     Active Substance: ASPIRIN
  2. ALBUTEROL SULFATE HFA 108 [Concomitant]
  3. PANTOPRAZOLE 40 MG [Concomitant]
     Active Substance: PANTOPRAZOLE SODIUM
  4. VITAMIN B12 100 MCG [Concomitant]
  5. FERROUS SULFATE 200 MG [Concomitant]
  6. TYLENOL EXTRA STRENGTH [Concomitant]
     Active Substance: ACETAMINOPHEN
  7. FLONASE 50 MCG [Concomitant]
  8. METOPROLOL TARTRATE 25 MG [Concomitant]
     Active Substance: METOPROLOL TARTRATE
  9. TAMSULOSIN 0.4 MG [Concomitant]
     Active Substance: TAMSULOSIN
  10. ABIRATERONE. [Suspect]
     Active Substance: ABIRATERONE ACETATE
     Indication: PROSTATE CANCER
     Route: 048
     Dates: start: 20191220, end: 20200225
  11. VENTOLIN HFA 108 [Concomitant]
  12. VITAMIN C 250 MG [Concomitant]
  13. PREDNISONE 10 MG [Concomitant]
     Active Substance: PREDNISONE
  14. BUPROPION 100 MG [Concomitant]
     Active Substance: BUPROPION
  15. CALCIUM 500 + D [Concomitant]
     Active Substance: CALCIUM\VITAMIN D
  16. ULORIC 40 MG [Concomitant]
  17. DULOXETINE 20 MG [Concomitant]
     Active Substance: DULOXETINE
  18. NITROGLYCERIN 0.4 MG [Concomitant]
  19. PRAMIPEXOLE 0.25 MG [Concomitant]

REACTIONS (1)
  - Death [None]
